FAERS Safety Report 22655010 (Version 1)
Quarter: 2023Q2

REPORT INFORMATION
  Report Type: Spontaneous
  Country: GB (occurrence: GB)
  Receive Date: 20230629
  Receipt Date: 20230629
  Transmission Date: 20230721
  Serious: Yes (Other)
  Sender: FDA-Public Use
  Company Number: GB-BAYER-2023A070861

PATIENT
  Age: 74 Year
  Sex: Female

DRUGS (1)
  1. LORATADINE [Suspect]
     Active Substance: LORATADINE
     Dosage: 10 MG

REACTIONS (4)
  - Epilepsy [None]
  - Photopsia [None]
  - Abdominal discomfort [None]
  - Pyrexia [None]
